FAERS Safety Report 13259265 (Version 1)
Quarter: 2017Q1

REPORT INFORMATION
  Report Type: Spontaneous
  Country: US (occurrence: US)
  Receive Date: 20170222
  Receipt Date: 20170222
  Transmission Date: 20170428
  Serious: No
  Sender: FDA-Public Use
  Company Number: US-PFIZER INC-2016498874

PATIENT
  Age: 63 Year
  Sex: Female

DRUGS (16)
  1. VINCRISTINE SULFATE. [Suspect]
     Active Substance: VINCRISTINE SULFATE
     Indication: LEUKAEMIA RECURRENT
     Dosage: UNK, CYCLIC [6 CYCLES (1 IN 1 CYCLICAL)]
  2. CYCLOPHOSPHAMIDE. [Suspect]
     Active Substance: CYCLOPHOSPHAMIDE
     Indication: LEUKAEMIA RECURRENT
     Dosage: UNK, CYCLIC [6 CYCLES (1 IN 1 CYCLICAL)]
  3. VINCRISTINE SULFATE. [Suspect]
     Active Substance: VINCRISTINE SULFATE
     Indication: BURKITT^S LEUKAEMIA
  4. ADRIAMYCIN [Suspect]
     Active Substance: DOXORUBICIN HYDROCHLORIDE
     Indication: BURKITT^S LEUKAEMIA
  5. HYPER CVAD [Suspect]
     Active Substance: CYCLOPHOSPHAMIDE\CYTARABINE\DEXAMETHASONE\DOXORUBICIN\METHOTREXATE\VINCRISTINE
     Indication: BURKITT^S LEUKAEMIA
     Dosage: UNK [6 CYCLES (1 IN 1 CYCLICAL)]
  6. DEXAMETHASONE. [Suspect]
     Active Substance: DEXAMETHASONE
     Indication: LEUKAEMIA RECURRENT
     Dosage: UNK, CYCLIC [6 CYCLES (1 IN 1 CYCLICAL)]
  7. DEXAMETHASONE. [Suspect]
     Active Substance: DEXAMETHASONE
     Indication: BURKITT^S LEUKAEMIA
  8. CARBOPLATIN. [Suspect]
     Active Substance: CARBOPLATIN
     Indication: DISEASE PROGRESSION
     Dosage: UNK, CYCLIC [ONE CYCLE (1 IN 1 CYCLICAL)]
  9. ADRIAMYCIN [Suspect]
     Active Substance: DOXORUBICIN HYDROCHLORIDE
     Indication: LEUKAEMIA RECURRENT
     Dosage: UNK, CYCLIC [6 CYCLES (1 IN 1 CYCLICAL)]
  10. HYPER CVAD [Suspect]
     Active Substance: CYCLOPHOSPHAMIDE\CYTARABINE\DEXAMETHASONE\DOXORUBICIN\METHOTREXATE\VINCRISTINE
     Indication: LEUKAEMIA RECURRENT
  11. INOTUZUMAB [Suspect]
     Active Substance: INOTUZUMAB OZOGAMICIN
     Indication: BURKITT^S LEUKAEMIA
     Dosage: UNK
  12. ICE [Suspect]
     Active Substance: MENTHOL
     Indication: DISEASE PROGRESSION
  13. CYCLOPHOSPHAMIDE. [Suspect]
     Active Substance: CYCLOPHOSPHAMIDE
     Indication: BURKITT^S LEUKAEMIA
  14. ICE [Suspect]
     Active Substance: MENTHOL
     Indication: BURKITT^S LEUKAEMIA
     Dosage: UNK [ ONE CYCLE (1 IN 1 CYCLICAL)]
  15. IFOSFAMIDE. [Suspect]
     Active Substance: IFOSFAMIDE
     Indication: DISEASE PROGRESSION
     Dosage: UNK, CYCLIC [ONE CYCLE (1 IN 1 CYCLICAL)]
  16. ETOPOSIDE. [Suspect]
     Active Substance: ETOPOSIDE
     Indication: DISEASE PROGRESSION
     Dosage: UNK, CYCLIC [ONE CYCLE (1 IN 1 CYCLICAL)]

REACTIONS (1)
  - Neoplasm progression [Unknown]
